FAERS Safety Report 8360375-8 (Version None)
Quarter: 2012Q2

REPORT INFORMATION
  Report Type: 
  Country: None (occurrence: None)
  Receive Date: 20120515
  Receipt Date: 20120508
  Transmission Date: 20120825
  Serious: Yes (Hospitalization, Other)
  Sender: FDA-Public Use
  Company Number: JP-SANOFI-AVENTIS-2012SA030004

PATIENT
  Age: 57 Year
  Sex: Male

DRUGS (4)
  1. CARBOPLATIN [Concomitant]
  2. TS-1 [Concomitant]
  3. TAXOTERE [Suspect]
     Route: 042
     Dates: start: 20120413
  4. GEMZAR [Concomitant]

REACTIONS (1)
  - PANCREATITIS ACUTE [None]
